FAERS Safety Report 10871130 (Version 1)
Quarter: 2015Q1

REPORT INFORMATION
  Report Type: Spontaneous
  Country: US (occurrence: US)
  Receive Date: 20150226
  Receipt Date: 20150226
  Transmission Date: 20150721
  Serious: Yes (Death)
  Sender: FDA-Public Use
  Company Number: US-BANPHARM-20153462

PATIENT
  Age: 57 Year
  Sex: Male

DRUGS (3)
  1. ETHANOL (NON-BEVERAGE) [Suspect]
     Active Substance: ALCOHOL
  2. DIPHENHYDRAMINE UNKNOWN PRODUCT [Suspect]
     Active Substance: DIPHENHYDRAMINE
     Route: 048
  3. OXYCODONE [Suspect]
     Active Substance: OXYCODONE

REACTIONS (3)
  - Drug abuse [Fatal]
  - Exposure via ingestion [None]
  - Alcohol use [None]
